FAERS Safety Report 11167136 (Version 1)
Quarter: 2015Q2

REPORT INFORMATION
  Report Type: Spontaneous
  Country: US (occurrence: None)
  Receive Date: 20150515
  Receipt Date: 20150515
  Transmission Date: 20150821
  Serious: Yes (Hospitalization)
  Sender: FDA-Public Use
  Company Number: 112392

PATIENT
  Age: 36 Year
  Sex: Female
  Weight: 59 kg

DRUGS (3)
  1. CIMZIA [Suspect]
     Active Substance: CERTOLIZUMAB PEGOL
     Indication: CROHN^S DISEASE
     Dosage: 400 MG , MONTHLY (QM) (TWO INJECTIONS 200MG EACH EVERY MONTH), SUBCUTANEOUS
     Route: 058
     Dates: start: 201312
  2. HYDROCODONE (HYDROCODONE BITARTRATE) [Concomitant]
     Active Substance: HYDROCODONE BITARTRATE
  3. IMURAN [Concomitant]
     Active Substance: AZATHIOPRINE

REACTIONS (4)
  - Crohn^s disease [None]
  - Back pain [None]
  - Arthralgia [None]
  - Malaise [None]

NARRATIVE: CASE EVENT DATE: 201312
